FAERS Safety Report 7293878-8 (Version None)
Quarter: 2011Q1

REPORT INFORMATION
  Report Type: 
  Country: None (occurrence: None)
  Receive Date: 20110215
  Receipt Date: 20110204
  Transmission Date: 20110831
  Serious: Yes (Other)
  Sender: FDA-Public Use
  Company Number: DE-JNJFOC-20110101667

PATIENT
  Age: 20 Year
  Sex: Female
  Weight: 55 kg

DRUGS (2)
  1. AZATHIOPRINE [Concomitant]
     Indication: CROHN'S DISEASE
  2. REMICADE [Suspect]
     Indication: CROHN'S DISEASE
     Dosage: 300 MG; 1 INFUSION TOTAL
     Route: 042

REACTIONS (7)
  - DYSPNOEA [None]
  - PALPITATIONS [None]
  - RASH [None]
  - BRONCHOSPASM [None]
  - INFUSION RELATED REACTION [None]
  - URTICARIA [None]
  - TACHYCARDIA [None]
